FAERS Safety Report 26213828 (Version 1)
Quarter: 2025Q4

REPORT INFORMATION
  Report Type: Spontaneous
  Country: US (occurrence: US)
  Receive Date: 20251230
  Receipt Date: 20251230
  Transmission Date: 20260117
  Serious: No
  Sender: BRISTOL-MYERS SQUIBB COMPANY
  Company Number: US-BRISTOL-MYERS SQUIBB COMPANY-2025-173935

PATIENT
  Age: 72 Year
  Weight: 58.97 kg

DRUGS (3)
  1. ELIQUIS [Suspect]
     Active Substance: APIXABAN
     Indication: Atrial fibrillation
     Dosage: DOSE : 1 TABLET;
     Route: 048
     Dates: start: 202509
  2. Fish oil pills [Concomitant]
     Indication: General physical health deterioration
  3. OCUVITE [Concomitant]
     Active Substance: VITAMINS
     Indication: Macular degeneration

REACTIONS (1)
  - Bleeding time prolonged [Unknown]
